FAERS Safety Report 15860033 (Version 1)
Quarter: 2019Q1

REPORT INFORMATION
  Report Type: Spontaneous
  Country: US (occurrence: US)
  Receive Date: 20190123
  Receipt Date: 20190123
  Transmission Date: 20190417
  Serious: Yes (Other)
  Sender: FDA-Public Use
  Company Number: US-COOPERSURGICAL, INC.-US-2019CPS000143

PATIENT

DRUGS (2)
  1. PARAGARD T 380A [Suspect]
     Active Substance: COPPER
     Indication: PRODUCT USED FOR UNKNOWN INDICATION
     Dosage: UNK
     Route: 015
     Dates: start: 20110602, end: 20190104
  2. RETIN-A [Concomitant]
     Active Substance: TRETINOIN
     Indication: ACNE

REACTIONS (5)
  - Menstruation irregular [Unknown]
  - Complication of device removal [Not Recovered/Not Resolved]
  - Menorrhagia [Unknown]
  - Foreign body in urogenital tract [Not Recovered/Not Resolved]
  - Device breakage [Not Recovered/Not Resolved]

NARRATIVE: CASE EVENT DATE: 20190104
